FAERS Safety Report 25593488 (Version 1)
Quarter: 2025Q3

REPORT INFORMATION
  Report Type: Report from Study
  Country: US (occurrence: US)
  Receive Date: 20250722
  Receipt Date: 20250722
  Transmission Date: 20251020
  Serious: Yes (Other)
  Sender: ALEXION PHARMACEUTICALS
  Company Number: 202506USA027358US

PATIENT
  Age: 73 Year
  Sex: Female
  Weight: 91.3 kg

DRUGS (1)
  1. OLAPARIB [Suspect]
     Active Substance: OLAPARIB
     Indication: Breast cancer
     Dosage: 200 MILLIGRAM, BID
     Dates: start: 20250606

REACTIONS (10)
  - Thrombosis [Unknown]
  - Blood creatinine increased [Not Recovered/Not Resolved]
  - Normocytic anaemia [Unknown]
  - Pallor [Unknown]
  - Hyperphosphataemia [Unknown]
  - Hypertension [Unknown]
  - Type 2 diabetes mellitus [Unknown]
  - Obesity [Unknown]
  - Chronic kidney disease [Unknown]
  - Renal impairment [Unknown]
